FAERS Safety Report 4800370-6 (Version None)
Quarter: 2005Q4

REPORT INFORMATION
  Report Type: 
  Country: None (occurrence: None)
  Receive Date: 20051012
  Receipt Date: 20050926
  Transmission Date: 20060501
  Serious: Yes (Hospitalization)
  Sender: FDA-Public Use
  Company Number: 2005-BP-17094RO

PATIENT
  Age: 36 Year
  Sex: Female

DRUGS (6)
  1. MIRTAZAPINE [Suspect]
     Indication: DEPRESSION
     Dosage: 30 MG DAILY (30 MG), PO
     Route: 048
  2. TRAMADOL HCL [Suspect]
     Indication: PAIN
     Dosage: 50 MG Q6H AS NEEDED (50 MG, AS REQUIRED), PO
     Route: 048
  3. GABAPENTIN [Concomitant]
  4. ZOLPIDEM TARTRATE [Concomitant]
  5. LEVOTHYROXINE SODIUM [Concomitant]
  6. CONJUGATED ESTROGENS (ESTROGENS CONJUGATED) [Concomitant]

REACTIONS (10)
  - AMNESIA [None]
  - BLOOD PRESSURE INCREASED [None]
  - CONVULSION [None]
  - FLUSHING [None]
  - HEADACHE [None]
  - LOSS OF CONSCIOUSNESS [None]
  - OVERDOSE [None]
  - PYREXIA [None]
  - SEROTONIN SYNDROME [None]
  - TACHYCARDIA [None]
